FAERS Safety Report 16460748 (Version 1)
Quarter: 2019Q2

REPORT INFORMATION
  Report Type: Other
  Country: US (occurrence: US)
  Receive Date: 20190620
  Receipt Date: 20190620
  Transmission Date: 20190711
  Serious: Yes (Other)
  Sender: FDA-Public Use
  Company Number: US-EMD SERONO-9097638

PATIENT
  Age: 73 Year
  Sex: Male

DRUGS (4)
  1. DIPHENHYDRAMINE. [Concomitant]
     Active Substance: DIPHENHYDRAMINE
     Indication: PREMEDICATION
  2. RANITIDINE. [Concomitant]
     Active Substance: RANITIDINE
     Indication: PREMEDICATION
  3. ACETAMINOPHEN. [Concomitant]
     Active Substance: ACETAMINOPHEN
     Indication: PREMEDICATION
  4. AVELUMAB [Suspect]
     Active Substance: AVELUMAB
     Indication: NEUROENDOCRINE CARCINOMA OF THE SKIN
     Route: 042

REACTIONS (2)
  - Tumour pseudoprogression [Unknown]
  - Lichenoid keratosis [Recovering/Resolving]
